FAERS Safety Report 17682030 (Version 1)
Quarter: 2020Q2

REPORT INFORMATION
  Report Type: Spontaneous
  Country: CH (occurrence: DE)
  Receive Date: 20200418
  Receipt Date: 20200418
  Transmission Date: 20200714
  Serious: Yes (Hospitalization, Other)
  Sender: FDA-Public Use
  Company Number: CH-AUROBINDO-AUR-APL-2020-019382

PATIENT
  Age: 74 Year
  Sex: Female
  Weight: 50 kg

DRUGS (7)
  1. CLONIDIN [Suspect]
     Active Substance: CLONIDINE
     Indication: METASTASES TO SPINE
     Dosage: 3 ML/H (300 MICROGRAM)
     Route: 008
  2. MORPHINE [Suspect]
     Active Substance: MORPHINE
     Indication: ANALGESIC THERAPY
     Dosage: 2.62 MILLIGRAM, ONCE A DAY
     Route: 058
  3. MORPHIN [Suspect]
     Active Substance: MORPHINE
     Indication: METASTASES TO SPINE
     Dosage: 3 ML/H (10 MG)
     Route: 008
  4. LIDOCAINE. [Concomitant]
     Active Substance: LIDOCAINE
     Indication: PRODUCT USED FOR UNKNOWN INDICATION
     Dosage: SINGLE DOSE OF 2% OF 3ML
     Route: 065
  5. BUPIVACAINE SOLUTION FOR INJECTION [Suspect]
     Active Substance: BUPIVACAINE
     Indication: ANALGESIC THERAPY
     Dosage: 356 MILLIGRAM, ONCE A DAY
     Route: 058
  6. CLONIDIN [Suspect]
     Active Substance: CLONIDINE
     Indication: ANALGESIC THERAPY
     Dosage: 78.54 MICROGRAM, ONCE A DAY
     Route: 058
  7. ADRENALINE [Concomitant]
     Active Substance: EPINEPHRINE
     Indication: PRODUCT USED FOR UNKNOWN INDICATION
     Dosage: 1:200 000 GIVEN AS TEST DOSE
     Route: 065

REACTIONS (2)
  - Ulcer [Not Recovered/Not Resolved]
  - Soft tissue necrosis [Not Recovered/Not Resolved]
